FAERS Safety Report 19868922 (Version 4)
Quarter: 2022Q1

REPORT INFORMATION
  Report Type: Spontaneous
  Country: CA (occurrence: CA)
  Receive Date: 20210922
  Receipt Date: 20220124
  Transmission Date: 20220424
  Serious: Yes (Death, Hospitalization, Other)
  Sender: FDA-Public Use
  Company Number: CA-PFIZER INC-202101190472

PATIENT
  Age: 85 Year
  Sex: Male
  Weight: 81.4 kg

DRUGS (14)
  1. VYNDAQEL [Suspect]
     Active Substance: TAFAMIDIS MEGLUMINE
     Indication: Cardiac amyloidosis
     Dosage: 80 MG, 1X/DAY
     Route: 048
     Dates: start: 20210907
  2. VYNDAQEL [Suspect]
     Active Substance: TAFAMIDIS MEGLUMINE
     Indication: Cardiac amyloidosis
  3. ATORVASTATIN [Concomitant]
     Active Substance: ATORVASTATIN
     Dosage: 40 MG
  4. APIXABAN [Concomitant]
     Active Substance: APIXABAN
     Dosage: 2500 UG
  5. FUROSEMIDE [Concomitant]
     Active Substance: FUROSEMIDE
     Dosage: 80 MG
  6. HYDRALAZINE [Concomitant]
     Active Substance: HYDRALAZINE HYDROCHLORIDE
     Dosage: 10 MG
  7. ISOSORBIDE [Concomitant]
     Active Substance: ISOSORBIDE
     Dosage: 20 MG
  8. LINAGLIPTIN [Concomitant]
     Active Substance: LINAGLIPTIN
     Dosage: 5 MG
  9. METOPROLOL [Concomitant]
     Active Substance: METOPROLOL
     Dosage: 25 MG
  10. PREGABALIN [Concomitant]
     Active Substance: PREGABALIN
     Dosage: 25 MG, 1X/DAY
     Route: 065
  11. RABEPRAZOLE [Concomitant]
     Active Substance: RABEPRAZOLE
     Dosage: 20 MG
  12. SYNTHROID [Concomitant]
     Active Substance: LEVOTHYROXINE SODIUM
     Dosage: 150 UG
  13. TAMSULOSIN [Concomitant]
     Active Substance: TAMSULOSIN
     Dosage: 400 UG
  14. CYANOCOBALAMIN [Concomitant]
     Active Substance: CYANOCOBALAMIN
     Dosage: 1 DF

REACTIONS (11)
  - Death [Fatal]
  - Gout [Not Recovered/Not Resolved]
  - Cardiac failure chronic [Unknown]
  - Atrial fibrillation [Not Recovered/Not Resolved]
  - Dyspnoea [Not Recovered/Not Resolved]
  - Mobility decreased [Unknown]
  - Arthralgia [Unknown]
  - Arthritis [Unknown]
  - Orthopnoea [Unknown]
  - Heart sounds abnormal [Unknown]
  - Oedema peripheral [Not Recovered/Not Resolved]

NARRATIVE: CASE EVENT DATE: 20220109
